FAERS Safety Report 6266745-6 (Version None)
Quarter: 2009Q3

REPORT INFORMATION
  Report Type: 
  Country: None (occurrence: None)
  Receive Date: 20090710
  Receipt Date: 20090710
  Transmission Date: 20100115
  Serious: Yes (Other)
  Sender: FDA-Public Use
  Company Number: None

PATIENT
  Sex: Female
  Weight: 122 kg

DRUGS (4)
  1. SODIUM STIBOGLUCONATE [Suspect]
     Indication: MALIGNANT MELANOMA
     Dosage: 2856 MG IV
     Route: 042
     Dates: start: 20090615
  2. SODIUM STIBOGLUCONATE [Suspect]
     Indication: MALIGNANT MELANOMA
     Dosage: 2856 MG IV
     Route: 042
     Dates: start: 20090629
  3. SODIUM STIBOGLUCONATE [Suspect]
     Indication: MALIGNANT MELANOMA
     Dosage: 2856 MG IV
     Route: 042
     Dates: start: 20090702
  4. INTERFERON [Concomitant]

REACTIONS (1)
  - LIPASE ABNORMAL [None]
